FAERS Safety Report 13980697 (Version 1)
Quarter: 2017Q3

REPORT INFORMATION
  Report Type: Spontaneous
  Country: GB (occurrence: GB)
  Receive Date: 20170918
  Receipt Date: 20170918
  Transmission Date: 20171128
  Serious: Yes (Other)
  Sender: FDA-Public Use
  Company Number: GB-ACCORD-058551

PATIENT
  Age: 21 Year
  Sex: Male

DRUGS (1)
  1. TRAMADOL/TRAMADOL HYDROCHLORIDE [Suspect]
     Active Substance: TRAMADOL HYDROCHLORIDE
     Indication: PAIN
     Dosage: DOSE: 25 DF, ONCE
     Route: 048
     Dates: end: 2016

REACTIONS (9)
  - Restlessness [Unknown]
  - Withdrawal syndrome [Recovered/Resolved]
  - Prescription drug used without a prescription [Unknown]
  - Dependence [Recovered/Resolved]
  - Formication [Recovered/Resolved]
  - Overdose [Unknown]
  - Seizure [Recovered/Resolved]
  - Euphoric mood [Recovered/Resolved]
  - Feeling hot [Unknown]

NARRATIVE: CASE EVENT DATE: 2009
